FAERS Safety Report 4636281-9 (Version None)
Quarter: 2005Q2

REPORT INFORMATION
  Report Type: 
  Country: None (occurrence: None)
  Receive Date: 20050415
  Receipt Date: 20040519
  Transmission Date: 20051028
  Serious: Yes (Hospitalization, Other)
  Sender: FDA-Public Use
  Company Number: US-BRISTOL-MYERS SQUIBB COMPANY-12591517

PATIENT
  Age: 38 Year
  Sex: Female
  Weight: 89 kg

DRUGS (7)
  1. CARBOPLATIN [Suspect]
     Indication: OVARIAN CANCER
     Dosage: AUC 5 INITIAL DOSE: 15-AUG-2003
     Route: 042
     Dates: start: 20030925, end: 20030925
  2. CARBOPLATIN [Suspect]
     Indication: ENDOMETRIAL CANCER
     Dosage: AUC 5 INITIAL DOSE: 15-AUG-2003
     Route: 042
     Dates: start: 20030925, end: 20030925
  3. ONDANSETRON [Concomitant]
     Indication: PREMEDICATION
     Dosage: X 1 DOSE
     Route: 042
  4. DEXAMETHASONE [Concomitant]
     Indication: PREMEDICATION
     Dosage: X 1 DOSE
     Route: 042
  5. ACETAMINOPHEN + CODEINE NO. 3 [Concomitant]
  6. MS CONTIN [Concomitant]
     Dosage: 15 MG EVERY MORNING, 30 MG EVERY EVENING
  7. MEGESTROL [Concomitant]
     Route: 048

REACTIONS (1)
  - HYPERSENSITIVITY [None]
